FAERS Safety Report 4986579-X (Version None)
Quarter: 2006Q2

REPORT INFORMATION
  Report Type: 
  Country: None (occurrence: None)
  Receive Date: 20060428
  Receipt Date: 20051222
  Transmission Date: 20061013
  Serious: No
  Sender: FDA-Public Use
  Company Number: US-GLAXOSMITHKLINE-A0586835A

PATIENT
  Sex: Female

DRUGS (4)
  1. VENTOLIN [Suspect]
     Indication: ASTHMA
     Route: 055
  2. FLOVENT [Concomitant]
  3. TYLENOL W/ CODEINE NO. 3 [Concomitant]
  4. PREVACID [Concomitant]

REACTIONS (1)
  - DRUG INEFFECTIVE [None]
